FAERS Safety Report 10203906 (Version 1)
Quarter: 2014Q2

REPORT INFORMATION
  Report Type: Spontaneous
  Country: AU (occurrence: AU)
  Receive Date: 20140529
  Receipt Date: 20140529
  Transmission Date: 20141212
  Serious: Yes (Hospitalization)
  Sender: FDA-Public Use
  Company Number: AU-ELI_LILLY_AND_COMPANY-AU201405006606

PATIENT
  Age: 19 Year
  Sex: Female

DRUGS (4)
  1. CYMBALTA [Suspect]
     Indication: DEPRESSION
     Dosage: 60 MG, QD
     Route: 048
     Dates: start: 201309
  2. CYMBALTA [Suspect]
     Dosage: 90 MG, QD
     Route: 048
  3. CYMBALTA [Suspect]
     Dosage: 60 MG, QD
     Route: 048
  4. CYMBALTA [Suspect]
     Dosage: 90 MG, QD
     Route: 048

REACTIONS (5)
  - Depression [Recovered/Resolved]
  - Mood swings [Recovered/Resolved]
  - Suicidal ideation [Recovered/Resolved]
  - Nausea [Recovered/Resolved]
  - Headache [Recovered/Resolved]
